FAERS Safety Report 10243352 (Version 1)
Quarter: 2014Q2

REPORT INFORMATION
  Report Type: Spontaneous
  Country: CA (occurrence: CA)
  Receive Date: 20140618
  Receipt Date: 20140618
  Transmission Date: 20141212
  Serious: Yes (Hospitalization)
  Sender: FDA-Public Use
  Company Number: CA-AMGEN-CANSP2014044604

PATIENT
  Age: 43 Year
  Sex: Female

DRUGS (1)
  1. XGEVA [Suspect]
     Indication: LUNG NEOPLASM MALIGNANT
     Dosage: 1.7 ML, (120MG/1.7ML) UNK
     Route: 065
     Dates: start: 20130512

REACTIONS (2)
  - Infection [Not Recovered/Not Resolved]
  - Dyspnoea [Not Recovered/Not Resolved]
